FAERS Safety Report 5067678-3 (Version None)
Quarter: 2006Q3

REPORT INFORMATION
  Report Type: 
  Country: None (occurrence: None)
  Receive Date: 20060712
  Receipt Date: 20060324
  Transmission Date: 20061208
  Serious: No
  Sender: FDA-Public Use
  Company Number: A03200601753

PATIENT
  Age: 78 Year
  Sex: Male

DRUGS (1)
  1. UROXATRAL [Suspect]
     Dosage: 10 MG OD  - ORAL
     Route: 048
     Dates: start: 20060301

REACTIONS (1)
  - MEDICATION RESIDUE [None]
